FAERS Safety Report 9356779 (Version 1)
Quarter: 2013Q2

REPORT INFORMATION
  Report Type: Spontaneous
  Country: US (occurrence: US)
  Receive Date: 20130619
  Receipt Date: 20130619
  Transmission Date: 20140414
  Serious: Yes (Other)
  Sender: FDA-Public Use
  Company Number: US-UCBSA-088724

PATIENT
  Sex: Male

DRUGS (1)
  1. VIMPAT [Suspect]
     Dosage: UNKNOWN DOSE

REACTIONS (3)
  - Coma [Unknown]
  - Status epilepticus [Unknown]
  - Anxiety [Unknown]
